FAERS Safety Report 20163603 (Version 3)
Quarter: 2022Q1

REPORT INFORMATION
  Report Type: Report from Study
  Country: US (occurrence: US)
  Receive Date: 20211209
  Receipt Date: 20220307
  Transmission Date: 20220424
  Serious: No
  Sender: FDA-Public Use
  Company Number: US-NOVARTISTESTPH-NVSC2021US281145

PATIENT
  Sex: Female
  Weight: 91.61 kg

DRUGS (5)
  1. TREPROSTINIL [Suspect]
     Active Substance: TREPROSTINIL
     Indication: Pulmonary arterial hypertension
     Dosage: 80 NANOGRAM PER KILOGRAM, CONT (DOSE - 80 NG/KG/MIN)
     Route: 042
     Dates: start: 20211119
  2. TREPROSTINIL [Suspect]
     Active Substance: TREPROSTINIL
     Dosage: 119 NANOGRAM PER KILOGRAM, CONT (DOSE - 119 NG/KG/MIN)
     Route: 042
     Dates: start: 20211119
  3. ADEMPAS [Concomitant]
     Active Substance: RIOCIGUAT
     Indication: Product used for unknown indication
     Dosage: UNK
     Route: 065
  4. WARFARIN [Concomitant]
     Active Substance: WARFARIN
     Indication: Product used for unknown indication
     Dosage: UNK
     Route: 065
  5. OPSUMIT [Concomitant]
     Active Substance: MACITENTAN
     Indication: Product used for unknown indication
     Dosage: UNK
     Route: 065

REACTIONS (7)
  - Flushing [Unknown]
  - Upper-airway cough syndrome [Unknown]
  - Sinus congestion [Unknown]
  - Hypersensitivity [Unknown]
  - Wheezing [Unknown]
  - Diarrhoea [Recovering/Resolving]
  - Dyspnoea [Unknown]
